FAERS Safety Report 24749800 (Version 4)
Quarter: 2024Q4

REPORT INFORMATION
  Report Type: Report from Study
  Country: CO (occurrence: CO)
  Receive Date: 20241218
  Receipt Date: 20241231
  Transmission Date: 20250115
  Serious: Yes (Life-Threatening, Other)
  Sender: NOVARTIS
  Company Number: CO-002147023-NVSC2024CO206363

PATIENT
  Age: 73 Year
  Sex: Female
  Weight: 66 kg

DRUGS (8)
  1. ELTROMBOPAG OLAMINE [Suspect]
     Active Substance: ELTROMBOPAG OLAMINE
     Indication: Plasma cell myeloma
     Dosage: 100 MG, QD
     Route: 048
     Dates: start: 20210301
  2. ELTROMBOPAG OLAMINE [Suspect]
     Active Substance: ELTROMBOPAG OLAMINE
     Indication: Aplastic anaemia
     Dosage: 100 MG, QD
     Route: 048
     Dates: start: 20210324
  3. ELTROMBOPAG OLAMINE [Suspect]
     Active Substance: ELTROMBOPAG OLAMINE
     Indication: Immune thrombocytopenia
     Dosage: 100 MG
     Route: 048
     Dates: start: 202104
  4. ELTROMBOPAG OLAMINE [Suspect]
     Active Substance: ELTROMBOPAG OLAMINE
     Indication: Bone marrow failure
     Dosage: 100 MG, QD
     Route: 065
     Dates: start: 20241003
  5. LOSARTAN [Suspect]
     Active Substance: LOSARTAN
     Indication: Hypertension
     Dosage: UNK, QD (5 YEARS AGO)
     Route: 065
  6. XALATAN [Concomitant]
     Active Substance: LATANOPROST
     Indication: Glaucoma
     Dosage: UNK, ONE DROP IN EACH EYE, QD
     Route: 065
  7. XALATAN [Concomitant]
     Active Substance: LATANOPROST
     Indication: Cataract
  8. LEVOTHYROXINE [Concomitant]
     Active Substance: LEVOTHYROXINE
     Indication: Product used for unknown indication
     Dosage: UNK
     Route: 065

REACTIONS (12)
  - Terminal state [Unknown]
  - Platelet count abnormal [Not Recovered/Not Resolved]
  - Urinary tract infection [Not Recovered/Not Resolved]
  - Weight decreased [Unknown]
  - Body height decreased [Unknown]
  - Feeling of despair [Unknown]
  - Infection [Not Recovered/Not Resolved]
  - Decreased immune responsiveness [Unknown]
  - Pyrexia [Unknown]
  - Product use issue [Unknown]
  - Product supply issue [Unknown]
  - Product use in unapproved indication [Unknown]

NARRATIVE: CASE EVENT DATE: 20241209
